FAERS Safety Report 19145544 (Version 1)
Quarter: 2021Q2

REPORT INFORMATION
  Report Type: Spontaneous
  Country: CN (occurrence: CN)
  Receive Date: 20210416
  Receipt Date: 20210416
  Transmission Date: 20210717
  Serious: Yes (Hospitalization)
  Sender: FDA-Public Use
  Company Number: CN-ASTRAZENECA-2021A296546

PATIENT
  Age: 81 Year
  Sex: Female
  Weight: 51 kg

DRUGS (1)
  1. TAGRISSO [Suspect]
     Active Substance: OSIMERTINIB
     Indication: TARGETED CANCER THERAPY
     Route: 048
     Dates: start: 20210308, end: 20210407

REACTIONS (6)
  - Paronychia [Recovering/Resolving]
  - Rash erythematous [Recovering/Resolving]
  - Skin disorder [Unknown]
  - Peripheral swelling [Unknown]
  - Pain [Unknown]
  - Sebaceous gland disorder [Unknown]

NARRATIVE: CASE EVENT DATE: 20210405
